FAERS Safety Report 19377216 (Version 2)
Quarter: 2021Q2

REPORT INFORMATION
  Report Type: Spontaneous
  Country: AU (occurrence: AU)
  Receive Date: 20210604
  Receipt Date: 20210614
  Transmission Date: 20210717
  Serious: Yes (Hospitalization)
  Sender: FDA-Public Use
  Company Number: AU-MYLANLABS-2021M1032688

PATIENT
  Age: 4 Decade
  Sex: Male

DRUGS (7)
  1. ESOMEPRAZOLE. [Suspect]
     Active Substance: ESOMEPRAZOLE MAGNESIUM
     Indication: NAUSEA
     Dosage: 40 MILLIGRAM, BID
     Route: 065
  2. ESOMEPRAZOLE. [Suspect]
     Active Substance: ESOMEPRAZOLE MAGNESIUM
     Indication: VOMITING
  3. APO OLANZAPINE [Interacting]
     Active Substance: OLANZAPINE
     Indication: SCHIZOPHRENIA
     Dosage: 30 MILLIGRAM, QD
     Route: 048
     Dates: start: 2020
  4. CLOZAPINE. [Interacting]
     Active Substance: CLOZAPINE
     Dosage: 750 MILLIGRAM, QD (UPTITRATED)
     Route: 065
  5. SODIUM VALPROATE [Concomitant]
     Active Substance: VALPROATE SODIUM
     Indication: SCHIZOPHRENIA
     Dosage: 1500 MILLIGRAM, QD
     Route: 065
  6. GASTROGEL                          /00066001/ [Concomitant]
     Indication: DYSPEPSIA
     Dosage: UNK
     Route: 065
  7. CLOZAPINE. [Interacting]
     Active Substance: CLOZAPINE
     Indication: SCHIZOPHRENIA
     Dosage: UNKNOWN INITIAL DOSE
     Route: 065

REACTIONS (5)
  - Gastrooesophageal reflux disease [Recovering/Resolving]
  - Drug interaction [Recovering/Resolving]
  - Drug ineffective [Unknown]
  - Haematemesis [Recovering/Resolving]
  - Condition aggravated [Recovering/Resolving]
